FAERS Safety Report 24313144 (Version 1)
Quarter: 2024Q3

REPORT INFORMATION
  Report Type: Spontaneous
  Country: US (occurrence: None)
  Receive Date: 20240912
  Receipt Date: 20240912
  Transmission Date: 20241017
  Serious: No
  Sender: Public
  Company Number: None

PATIENT
  Age: 36 Year
  Sex: Male
  Weight: 83.25 kg

DRUGS (1)
  1. COSMETICS [Suspect]
     Active Substance: COSMETICS
     Indication: Prophylaxis against solar radiation
     Dates: start: 20240701, end: 20240712

REACTIONS (3)
  - Application site vesicles [None]
  - Lip haemorrhage [None]
  - Chapped lips [None]

NARRATIVE: CASE EVENT DATE: 20240712
